FAERS Safety Report 15486551 (Version 8)
Quarter: 2019Q4

REPORT INFORMATION
  Report Type: Spontaneous
  Country: CA (occurrence: CA)
  Receive Date: 20181011
  Receipt Date: 20191021
  Transmission Date: 20200122
  Serious: Yes (Other)
  Sender: FDA-Public Use
  Company Number: CA-ROCHE-1171861

PATIENT
  Age: 47 Year
  Sex: Female
  Weight: 55 kg

DRUGS (46)
  1. OMALIZUMAB. [Suspect]
     Active Substance: OMALIZUMAB
     Route: 058
     Dates: start: 20140422
  2. OMALIZUMAB. [Suspect]
     Active Substance: OMALIZUMAB
     Route: 058
     Dates: start: 20150519
  3. OMALIZUMAB. [Suspect]
     Active Substance: OMALIZUMAB
     Indication: ASTHMA
     Route: 058
     Dates: start: 20071005
  4. OMALIZUMAB. [Suspect]
     Active Substance: OMALIZUMAB
     Route: 058
     Dates: start: 20140715
  5. OMALIZUMAB. [Suspect]
     Active Substance: OMALIZUMAB
     Route: 058
     Dates: start: 20141231
  6. OMALIZUMAB. [Suspect]
     Active Substance: OMALIZUMAB
     Route: 058
     Dates: start: 20151201
  7. OMALIZUMAB. [Suspect]
     Active Substance: OMALIZUMAB
     Route: 058
     Dates: start: 20160714
  8. OMALIZUMAB. [Suspect]
     Active Substance: OMALIZUMAB
     Route: 058
     Dates: start: 20160810
  9. OMALIZUMAB. [Suspect]
     Active Substance: OMALIZUMAB
     Route: 058
     Dates: start: 20161005
  10. OMALIZUMAB. [Suspect]
     Active Substance: OMALIZUMAB
     Route: 058
     Dates: start: 20170224
  11. OMALIZUMAB. [Suspect]
     Active Substance: OMALIZUMAB
     Route: 058
     Dates: start: 20180904
  12. OMALIZUMAB. [Suspect]
     Active Substance: OMALIZUMAB
     Route: 058
     Dates: start: 20190124
  13. OMALIZUMAB. [Suspect]
     Active Substance: OMALIZUMAB
     Route: 058
     Dates: start: 20131203
  14. OMALIZUMAB. [Suspect]
     Active Substance: OMALIZUMAB
     Route: 058
     Dates: start: 20160906
  15. OMALIZUMAB. [Suspect]
     Active Substance: OMALIZUMAB
     Route: 058
     Dates: start: 20170413
  16. PREDNISONE. [Concomitant]
     Active Substance: PREDNISONE
     Indication: PRODUCT USED FOR UNKNOWN INDICATION
     Dosage: UNK
     Route: 065
  17. OMALIZUMAB. [Suspect]
     Active Substance: OMALIZUMAB
     Route: 058
     Dates: start: 20130521
  18. OMALIZUMAB. [Suspect]
     Active Substance: OMALIZUMAB
     Route: 058
     Dates: start: 20130618
  19. OMALIZUMAB. [Suspect]
     Active Substance: OMALIZUMAB
     Route: 058
     Dates: start: 20140617
  20. OMALIZUMAB. [Suspect]
     Active Substance: OMALIZUMAB
     Route: 058
     Dates: start: 20160225
  21. OMALIZUMAB. [Suspect]
     Active Substance: OMALIZUMAB
     Route: 058
     Dates: start: 20171107
  22. OMALIZUMAB. [Suspect]
     Active Substance: OMALIZUMAB
     Route: 058
     Dates: start: 20181002
  23. OMALIZUMAB. [Suspect]
     Active Substance: OMALIZUMAB
     Route: 058
     Dates: start: 20190418
  24. SINGULAIR [Concomitant]
     Active Substance: MONTELUKAST SODIUM
     Indication: PRODUCT USED FOR UNKNOWN INDICATION
     Dosage: UNK
     Route: 065
  25. OMALIZUMAB. [Suspect]
     Active Substance: OMALIZUMAB
     Route: 058
     Dates: start: 20141104
  26. OMALIZUMAB. [Suspect]
     Active Substance: OMALIZUMAB
     Dosage: UNK
     Route: 058
     Dates: start: 20160421
  27. OMALIZUMAB. [Suspect]
     Active Substance: OMALIZUMAB
     Route: 058
     Dates: start: 20180424
  28. OMALIZUMAB. [Suspect]
     Active Substance: OMALIZUMAB
     Route: 058
     Dates: start: 20181127
  29. VOLTAREN [DICLOFENAC] [Suspect]
     Active Substance: DICLOFENAC SODIUM
     Indication: PRODUCT USED FOR UNKNOWN INDICATION
     Dosage: UNK
     Route: 065
  30. OMALIZUMAB. [Suspect]
     Active Substance: OMALIZUMAB
     Route: 058
     Dates: start: 20071119
  31. OMALIZUMAB. [Suspect]
     Active Substance: OMALIZUMAB
     Route: 058
     Dates: start: 20090504
  32. OMALIZUMAB. [Suspect]
     Active Substance: OMALIZUMAB
     Route: 058
     Dates: start: 20150908
  33. OMALIZUMAB. [Suspect]
     Active Substance: OMALIZUMAB
     Route: 058
     Dates: start: 20071105
  34. OMALIZUMAB. [Suspect]
     Active Substance: OMALIZUMAB
     Route: 058
     Dates: start: 20130103
  35. OMALIZUMAB. [Suspect]
     Active Substance: OMALIZUMAB
     Route: 058
     Dates: start: 20140909
  36. OMALIZUMAB. [Suspect]
     Active Substance: OMALIZUMAB
     Route: 058
     Dates: start: 20150714
  37. OMALIZUMAB. [Suspect]
     Active Substance: OMALIZUMAB
     Route: 058
     Dates: start: 20190516
  38. OMALIZUMAB. [Suspect]
     Active Substance: OMALIZUMAB
     Route: 058
     Dates: start: 20190613
  39. OMALIZUMAB. [Suspect]
     Active Substance: OMALIZUMAB
     Route: 058
     Dates: start: 20190615
  40. ZOSTAVAX [Concomitant]
     Active Substance: VARICELLA-ZOSTER VIRUS STRAIN OKA/MERCK LIVE ANTIGEN
     Indication: PRODUCT USED FOR UNKNOWN INDICATION
     Dosage: UNK
     Route: 065
  41. OMALIZUMAB. [Suspect]
     Active Substance: OMALIZUMAB
     Route: 058
     Dates: start: 20141007
  42. OMALIZUMAB. [Suspect]
     Active Substance: OMALIZUMAB
     Route: 058
     Dates: start: 20160323
  43. OMALIZUMAB. [Suspect]
     Active Substance: OMALIZUMAB
     Route: 058
     Dates: start: 20161230
  44. OMALIZUMAB. [Suspect]
     Active Substance: OMALIZUMAB
     Route: 058
     Dates: start: 20170516
  45. OMALIZUMAB. [Suspect]
     Active Substance: OMALIZUMAB
     Route: 058
     Dates: start: 20181227
  46. FLOVENT [Concomitant]
     Active Substance: FLUTICASONE PROPIONATE
     Indication: PRODUCT USED FOR UNKNOWN INDICATION
     Dosage: UNK
     Route: 065

REACTIONS (48)
  - Lower respiratory tract infection [Recovering/Resolving]
  - Cyst [Unknown]
  - Neck injury [Unknown]
  - Dyspnoea exertional [Unknown]
  - Pyrexia [Recovered/Resolved]
  - Clostridium difficile infection [Unknown]
  - Mass excision [Recovering/Resolving]
  - Headache [Unknown]
  - Respiratory disorder [Unknown]
  - Dyspnoea [Unknown]
  - Paraesthesia oral [Recovered/Resolved]
  - Injection site swelling [Unknown]
  - Drug intolerance [Unknown]
  - Hypersensitivity [Unknown]
  - Malaise [Unknown]
  - Feeling jittery [Unknown]
  - Rales [Unknown]
  - Euphoric mood [Recovering/Resolving]
  - Blood pressure increased [Not Recovered/Not Resolved]
  - Nasopharyngitis [Recovered/Resolved]
  - Arthropod bite [Unknown]
  - Wolff-Parkinson-White syndrome [Not Recovered/Not Resolved]
  - Seasonal allergy [Unknown]
  - Pruritus [Recovering/Resolving]
  - Heart rate decreased [Not Recovered/Not Resolved]
  - Soft tissue injury [Unknown]
  - Diarrhoea [Unknown]
  - Urticaria [Unknown]
  - Asthma [Recovering/Resolving]
  - Productive cough [Unknown]
  - Somnolence [Unknown]
  - Stress [Unknown]
  - Fatigue [Unknown]
  - Feeling abnormal [Unknown]
  - Hypothyroidism [Unknown]
  - Anxiety [Unknown]
  - Tooth abscess [Unknown]
  - Tooth infection [Recovering/Resolving]
  - Injection site erythema [Unknown]
  - Road traffic accident [Unknown]
  - Sinus congestion [Unknown]
  - Body temperature decreased [Unknown]
  - Ocular hyperaemia [Unknown]
  - Nasal congestion [Recovered/Resolved]
  - Lymphadenectomy [Unknown]
  - Drug hypersensitivity [Unknown]
  - Wheezing [Unknown]
  - Rash [Recovering/Resolving]

NARRATIVE: CASE EVENT DATE: 20080117
